FAERS Safety Report 9786404 (Version 2)
Quarter: 2014Q1

REPORT INFORMATION
  Report Type: Spontaneous
  Country: DE (occurrence: None)
  Receive Date: 20131224
  Receipt Date: 20140226
  Transmission Date: 20141002
  Serious: Yes (Disabling)
  Sender: FDA-Public Use
  Company Number: AUR-APL-2013-10585

PATIENT
  Age: 47 Year
  Sex: Male
  Weight: 90 kg

DRUGS (6)
  1. SIMVASTATIN [Suspect]
     Indication: PRODUCT USED FOR UNKNOWN INDICATION
     Route: 048
     Dates: start: 2007
  2. EZETROL (EZETIMIBE) [Suspect]
     Indication: PRODUCT USED FOR UNKNOWN INDICATION
     Route: 048
     Dates: start: 200909
  3. ATORVASTATIN (ATORVASTATIN) [Concomitant]
  4. OMACOR (OMEGA-3-ACID ETHYL ESTER) [Concomitant]
  5. ASS (ACETYLSALICYLIC ACID) [Concomitant]
  6. THYROXIN (LEVOTHYROXINE SODIUM) [Concomitant]

REACTIONS (4)
  - Plantar fasciitis [None]
  - Tendonitis [None]
  - Tendon pain [None]
  - White blood cell count decreased [None]
